FAERS Safety Report 7908886-0 (Version None)
Quarter: 2011Q4

REPORT INFORMATION
  Report Type: 
  Country: None (occurrence: None)
  Receive Date: 20111111
  Receipt Date: 20111102
  Transmission Date: 20120403
  Serious: Yes (Other)
  Sender: FDA-Public Use
  Company Number: GB-BRISTOL-MYERS SQUIBB COMPANY-16213498

PATIENT
  Age: 78 Year
  Sex: Female

DRUGS (1)
  1. PRAVASTATIN SODIUM [Suspect]

REACTIONS (3)
  - NEURALGIA [None]
  - VITH NERVE PARALYSIS [None]
  - IVTH NERVE PARALYSIS [None]
